FAERS Safety Report 11851726 (Version 2)
Quarter: 2016Q1

REPORT INFORMATION
  Report Type: Spontaneous
  Country: ES (occurrence: ES)
  Receive Date: 20151218
  Receipt Date: 20160308
  Transmission Date: 20160526
  Serious: No
  Sender: FDA-Public Use
  Company Number: ES-CELGENE-ESP-2015121067

PATIENT
  Age: 75 Year
  Sex: Male

DRUGS (2)
  1. ABRAXANE [Suspect]
     Active Substance: PACLITAXEL
     Indication: ADENOCARCINOMA PANCREAS
     Dosage: 13.3929 MILLIGRAM/SQ. METER
     Route: 041
     Dates: start: 201411, end: 20151127
  2. GEMCITABINE [Concomitant]
     Active Substance: GEMCITABINE\GEMCITABINE HYDROCHLORIDE
     Indication: ADENOCARCINOMA PANCREAS
     Route: 065
     Dates: start: 20141128, end: 20151127

REACTIONS (7)
  - Pyrexia [Unknown]
  - Anaemia [Unknown]
  - Alopecia [Unknown]
  - Neutropenia [Unknown]
  - Nail dystrophy [Unknown]
  - Hepatotoxicity [Recovered/Resolved]
  - Asthenia [Unknown]

NARRATIVE: CASE EVENT DATE: 20150306
